FAERS Safety Report 9562522 (Version 2)
Quarter: 2013Q3

REPORT INFORMATION
  Report Type: Spontaneous
  Country: US (occurrence: US)
  Receive Date: 20130927
  Receipt Date: 20130927
  Transmission Date: 20140515
  Serious: Yes (Hospitalization)
  Sender: FDA-Public Use
  Company Number: US-SANOFI-AVENTIS-FABR-1003161

PATIENT
  Age: 13 Year
  Sex: Male
  Weight: 37 kg

DRUGS (2)
  1. FABRAZYME [Suspect]
     Indication: FABRY^S DISEASE
     Dosage: UNK
     Route: 042
     Dates: start: 20060420
  2. PRILOSEC [Concomitant]
     Indication: VOMITING

REACTIONS (11)
  - Arthropod bite [Recovered/Resolved]
  - Oedema peripheral [Unknown]
  - Staphylococcal infection [Recovered/Resolved]
  - Pyrexia [Recovered/Resolved]
  - Pain [Recovered/Resolved]
  - Rash generalised [Recovered/Resolved]
  - Thrombocytopenia [Unknown]
  - Petechiae [Unknown]
  - Leukopenia [Recovered/Resolved]
  - Neck pain [Unknown]
  - Musculoskeletal stiffness [Recovered/Resolved]
